FAERS Safety Report 16991492 (Version 5)
Quarter: 2020Q1

REPORT INFORMATION
  Report Type: Report from Study
  Country: CO (occurrence: CO)
  Receive Date: 20191104
  Receipt Date: 20200213
  Transmission Date: 20200409
  Serious: Yes (Hospitalization)
  Sender: FDA-Public Use
  Company Number: NVSC2019CO007094

PATIENT
  Age: 32 Year
  Sex: Male

DRUGS (3)
  1. SIGNIFOR LAR [Suspect]
     Active Substance: PASIREOTIDE PAMOATE
     Indication: ACROMEGALY
     Dosage: 40 MG, Q4W
     Route: 030
     Dates: start: 20190104, end: 20191010
  2. SIGNIFOR LAR [Suspect]
     Active Substance: PASIREOTIDE PAMOATE
     Dosage: 60 MG, QMO (AMPOULE)
     Route: 030
  3. SIGNIFOR LAR [Suspect]
     Active Substance: PASIREOTIDE PAMOATE
     Dosage: 60 MG, Q4W
     Route: 030
     Dates: start: 20191010

REACTIONS (15)
  - Pyrexia [Unknown]
  - Tachycardia [Recovered/Resolved]
  - Cold sweat [Recovered/Resolved]
  - Infection [Unknown]
  - Investigation abnormal [Unknown]
  - Spinal column injury [Unknown]
  - Chills [Recovered/Resolved]
  - Hormone level abnormal [Unknown]
  - Injury [Unknown]
  - Fall [Not Recovered/Not Resolved]
  - Skin lesion [Unknown]
  - Bacterial infection [Unknown]
  - Ulcer [Unknown]
  - Vomiting [Recovered/Resolved]
  - Headache [Unknown]

NARRATIVE: CASE EVENT DATE: 20191008
